FAERS Safety Report 7723213-X (Version None)
Quarter: 2011Q3

REPORT INFORMATION
  Report Type: 
  Country: None (occurrence: None)
  Receive Date: 20110901
  Receipt Date: 20110127
  Transmission Date: 20111222
  Serious: No
  Sender: FDA-Public Use
  Company Number: US-BAYER-2011-010798

PATIENT
  Sex: Female

DRUGS (2)
  1. ANTIBIOTICS [Concomitant]
     Indication: DENTAL CARE
  2. MIRENA [Suspect]
     Indication: CONTRACEPTION
     Dosage: 20 MCG/24HR, CONT
     Route: 015
     Dates: start: 20070601, end: 20110114

REACTIONS (10)
  - AGGRESSION [None]
  - ANXIETY [None]
  - HYPOAESTHESIA [None]
  - CONFUSIONAL STATE [None]
  - GAIT DISTURBANCE [None]
  - SKIN DISORDER [None]
  - DEPRESSION [None]
  - FATIGUE [None]
  - ARTHRALGIA [None]
  - MYALGIA [None]
